FAERS Safety Report 18399200 (Version 1)
Quarter: 2020Q4

REPORT INFORMATION
  Report Type: Spontaneous
  Country: US (occurrence: US)
  Receive Date: 20201019
  Receipt Date: 20201019
  Transmission Date: 20210114
  Serious: No
  Sender: FDA-Public Use
  Company Number: US-ALLERGAN-2009630US

PATIENT
  Age: 91 Year
  Sex: Male

DRUGS (3)
  1. UROXATRAL [Concomitant]
     Active Substance: ALFUZOSIN HYDROCHLORIDE
     Indication: PROSTATIC DISORDER
  2. BLEPHAMIDE [Suspect]
     Active Substance: PREDNISOLONE ACETATE\SULFACETAMIDE SODIUM
     Indication: HORDEOLUM
     Dosage: 4 GTT, QID
     Route: 047
     Dates: start: 20200201, end: 20200201
  3. METOPROLOL. [Concomitant]
     Active Substance: METOPROLOL
     Indication: CARDIAC DISORDER

REACTIONS (1)
  - Eye irritation [Recovered/Resolved]

NARRATIVE: CASE EVENT DATE: 20200201
